FAERS Safety Report 5104081-1 (Version None)
Quarter: 2006Q3

REPORT INFORMATION
  Report Type: 
  Country: None (occurrence: None)
  Receive Date: 20060911
  Receipt Date: 20060829
  Transmission Date: 20061208
  Serious: Yes (Hospitalization)
  Sender: FDA-Public Use
  Company Number: 2006107382

PATIENT
  Age: 18 Month
  Sex: Female

DRUGS (3)
  1. ATARAX [Suspect]
     Indication: PRURITUS
     Dosage: ORAL
     Route: 048
     Dates: start: 20051220
  2. MMR II PRO VACCINE (MEASLES, MUMPS AND RUBELLA VACCINE) [Suspect]
     Indication: PRURITUS
     Dosage: SUBCUTANEOUS
     Route: 058
     Dates: start: 20051220
  3. MUMPS VACCINE (LIVE ATTENUATED) (MUMPS VACCINE (LIVE ATTENUATED)) [Suspect]
     Indication: DRUG USE FOR UNKNOWN INDICATION
     Dosage: INTRAMUSCULAR
     Route: 030
     Dates: start: 20051209

REACTIONS (4)
  - ANGER [None]
  - PYREXIA [None]
  - RASH PRURITIC [None]
  - VACCINATION COMPLICATION [None]
